FAERS Safety Report 18675498 (Version 1)
Quarter: 2020Q4

REPORT INFORMATION
  Report Type: Report from Study
  Country: None (occurrence: IT)
  Receive Date: 20201229
  Receipt Date: 20201229
  Transmission Date: 20210114
  Serious: Yes (Other)
  Sender: FDA-Public Use
  Company Number: IT-ABBVIE-20K-083-3705357-00

PATIENT
  Age: 72 Year
  Sex: Male

DRUGS (2)
  1. DUODOPA [Suspect]
     Active Substance: CARBIDOPA\LEVODOPA
     Indication: PRODUCT USED FOR UNKNOWN INDICATION
     Dosage: PUMP SETTING: MD: 7+3 CR: 4,9 (13H), ED: 2,7
     Route: 050
     Dates: start: 20191125
  2. DUODOPA [Suspect]
     Active Substance: CARBIDOPA\LEVODOPA

REACTIONS (3)
  - Gastrointestinal tract irritation [Unknown]
  - Small intestinal obstruction [Unknown]
  - Ileus paralytic [Unknown]

NARRATIVE: CASE EVENT DATE: 202012
